FAERS Safety Report 14121791 (Version 2)
Quarter: 2017Q4

REPORT INFORMATION
  Report Type: Spontaneous
  Country: US (occurrence: US)
  Receive Date: 20171024
  Receipt Date: 20171029
  Transmission Date: 20180321
  Serious: Yes (Other)
  Sender: FDA-Public Use
  Company Number: US-TEVA-818566USA

PATIENT
  Sex: Female

DRUGS (1)
  1. FENTANYL. [Suspect]
     Active Substance: FENTANYL
     Indication: PRODUCT USED FOR UNKNOWN INDICATION
     Route: 048

REACTIONS (2)
  - Cerebrovascular accident [Unknown]
  - Pain [Unknown]
